FAERS Safety Report 7580031-3 (Version None)
Quarter: 2011Q2

REPORT INFORMATION
  Report Type: 
  Country: None (occurrence: None)
  Receive Date: 20110629
  Receipt Date: 20110621
  Transmission Date: 20111010
  Serious: Yes (Other)
  Sender: FDA-Public Use
  Company Number: JP-JNJFOC-20110611333

PATIENT
  Age: 80 Year
  Sex: Female

DRUGS (7)
  1. GALANTAMINE HYDROBROMIDE [Suspect]
     Indication: DEMENTIA ALZHEIMER'S TYPE
     Route: 048
     Dates: start: 20110425
  2. GALANTAMINE HYDROBROMIDE [Suspect]
     Route: 048
     Dates: start: 20110523
  3. FAMOTIDINE [Concomitant]
     Route: 048
  4. CALCIUM ASPARTATE [Concomitant]
     Route: 048
  5. TOYOFAROL [Concomitant]
     Route: 048
  6. GALANTAMINE HYDROBROMIDE [Suspect]
     Dosage: 4 MG TWICE
     Route: 048
     Dates: start: 20110620
  7. CANDESARTAN CILEXETIL [Concomitant]
     Route: 048

REACTIONS (1)
  - GASTRIC ULCER [None]
